FAERS Safety Report 8595826-7 (Version None)
Quarter: 2012Q3

REPORT INFORMATION
  Report Type: 
  Country: None (occurrence: None)
  Receive Date: 20120807
  Receipt Date: 20120807
  Transmission Date: 20120928
  Serious: Yes (Death, Life-Threatening, Hospitalization)
  Sender: FDA-Public Use
  Company Number: None

PATIENT
  Sex: Male
  Weight: 48.7 kg

DRUGS (3)
  1. HEPARIN [Suspect]
     Indication: ANGIOPLASTY
     Dosage: 2500 UNITS ONCE INTRA-ARTERIALLY UNSURE WHICH VIAL
     Route: 013
     Dates: start: 20120718
  2. HEPARIN [Suspect]
     Indication: RENAL ARTERY STENT PLACEMENT
     Dosage: 2500 UNITS ONCE INTRA-ARTERIALLY UNSURE WHICH VIAL
     Route: 013
     Dates: start: 20120718
  3. HEPARIN [Suspect]
     Indication: THROMBOSIS PROPHYLAXIS
     Dosage: 2500 UNITS ONCE INTRA-ARTERIALLY UNSURE WHICH VIAL
     Route: 013

REACTIONS (2)
  - PRODUCT QUALITY ISSUE [None]
  - HAEMORRHAGIC STROKE [None]
